FAERS Safety Report 6444198-2 (Version None)
Quarter: 2009Q4

REPORT INFORMATION
  Report Type: 
  Country: None (occurrence: None)
  Receive Date: 20091118
  Receipt Date: 20091112
  Transmission Date: 20100525
  Serious: Yes (Hospitalization)
  Sender: FDA-Public Use
  Company Number: ES-WYE-G04864809

PATIENT
  Age: 54 Year
  Sex: Female

DRUGS (1)
  1. TIGECYCLINE [Suspect]
     Indication: CELLULITIS
     Route: 042
     Dates: start: 20090813, end: 20090821

REACTIONS (4)
  - ASPARTATE AMINOTRANSFERASE INCREASED [None]
  - BLOOD LACTATE DEHYDROGENASE INCREASED [None]
  - LIVER DISORDER [None]
  - VOMITING [None]
